FAERS Safety Report 6709930-9 (Version None)
Quarter: 2010Q2

REPORT INFORMATION
  Report Type: 
  Country: None (occurrence: None)
  Receive Date: 20100504
  Receipt Date: 20100426
  Transmission Date: 20101027
  Serious: Yes (Hospitalization, Disabling, Other)
  Sender: FDA-Public Use
  Company Number: US-ABBOTT-09P-163-0597396-00

PATIENT
  Sex: Male
  Weight: 115.77 kg

DRUGS (21)
  1. HYTRIN [Suspect]
     Indication: HYPERTENSION
     Route: 048
     Dates: start: 19980101, end: 20090701
  2. HYTRIN [Suspect]
     Route: 048
     Dates: start: 20090701, end: 20090914
  3. HYTRIN [Suspect]
     Dates: start: 19980101, end: 20090914
  4. HYTRIN [Suspect]
  5. SPIRONOLACTONE [Concomitant]
     Indication: HYPERTENSION
     Route: 048
  6. SIMVASTATIN [Concomitant]
     Indication: BLOOD CHOLESTEROL INCREASED
     Route: 048
  7. LISINOPRIL [Concomitant]
     Indication: HYPERTENSION
     Route: 048
  8. ASPIRIN [Concomitant]
     Indication: CARDIOVASCULAR EVENT PROPHYLAXIS
     Route: 048
  9. CHOLESTEROL [Concomitant]
     Indication: BLOOD CHOLESTEROL INCREASED
     Dosage: 1/2 TABLET, ONE DAILY
     Route: 048
  10. AMLODIPINE [Concomitant]
     Indication: DRUG USE FOR UNKNOWN INDICATION
  11. SPINAL ANESTHESIA [Concomitant]
     Indication: DRUG USE FOR UNKNOWN INDICATION
  12. IBUPROFEN [Concomitant]
     Indication: DRUG USE FOR UNKNOWN INDICATION
     Route: 048
  13. IBUPROFEN [Concomitant]
     Dates: start: 20090606
  14. RANITIDINE HCL [Concomitant]
     Indication: DRUG USE FOR UNKNOWN INDICATION
  15. NAPROXEN [Concomitant]
     Indication: DRUG USE FOR UNKNOWN INDICATION
  16. INFLUENZA VACCINE [Concomitant]
     Indication: DRUG USE FOR UNKNOWN INDICATION
     Dosage: LEFT DELTOID
  17. SULFAMETHOXAZOLE AND TRIMETHOPRIM DOUBLE STRENGTH [Concomitant]
     Indication: DRUG USE FOR UNKNOWN INDICATION
     Dates: start: 20080516
  18. PROPOXY-N/APAP 100-650 [Concomitant]
     Indication: DRUG USE FOR UNKNOWN INDICATION
     Dates: start: 20080516
  19. HYDROCODONE BITARTRATE AND ACETAMINOPHEN [Concomitant]
     Indication: DRUG USE FOR UNKNOWN INDICATION
     Dates: start: 20090606
  20. OXYCODONE HCL AND ACETAMINOPHEN [Concomitant]
     Indication: DRUG USE FOR UNKNOWN INDICATION
     Dosage: 5/325
     Dates: start: 20090613
  21. METOPROLOL TARTRATE [Concomitant]
     Indication: DRUG USE FOR UNKNOWN INDICATION
     Dates: start: 20100122

REACTIONS (41)
  - ABDOMINAL PAIN [None]
  - ADRENAL MASS [None]
  - ARTHRALGIA [None]
  - BACK PAIN [None]
  - BENIGN PROSTATIC HYPERPLASIA [None]
  - CARPAL TUNNEL SYNDROME [None]
  - CHEST DISCOMFORT [None]
  - CHEST X-RAY ABNORMAL [None]
  - CHOLECYSTECTOMY [None]
  - DIARRHOEA [None]
  - DIZZINESS [None]
  - FAECES DISCOLOURED [None]
  - FALL [None]
  - FATIGUE [None]
  - FIBULA FRACTURE [None]
  - FLANK PAIN [None]
  - GASTROOESOPHAGEAL REFLUX DISEASE [None]
  - HYPOAESTHESIA [None]
  - HYPOKALAEMIA [None]
  - IMPAIRED FASTING GLUCOSE [None]
  - IMPAIRED WORK ABILITY [None]
  - INTERVERTEBRAL DISC DEGENERATION [None]
  - JOINT SWELLING [None]
  - LOSS OF CONSCIOUSNESS [None]
  - MIGRAINE [None]
  - MUSCULOSKELETAL PAIN [None]
  - MUSCULOSKELETAL STIFFNESS [None]
  - OBESITY [None]
  - ONYCHOMYCOSIS [None]
  - OSTEOARTHRITIS [None]
  - PAIN IN EXTREMITY [None]
  - PARAESTHESIA [None]
  - PATELLOFEMORAL PAIN SYNDROME [None]
  - PEDAL PULSE DECREASED [None]
  - PERIPHERAL COLDNESS [None]
  - POST GASTRIC SURGERY SYNDROME [None]
  - RENAL CYST [None]
  - SPINAL OSTEOARTHRITIS [None]
  - SUPRAVENTRICULAR TACHYCARDIA [None]
  - SYNCOPE [None]
  - TIBIA FRACTURE [None]
